FAERS Safety Report 4663282-7 (Version None)
Quarter: 2005Q2

REPORT INFORMATION
  Report Type: 
  Country: None (occurrence: None)
  Receive Date: 20050513
  Receipt Date: 20050503
  Transmission Date: 20051028
  Serious: Yes (Other)
  Sender: FDA-Public Use
  Company Number: 200511224GDS

PATIENT
  Age: 79 Year
  Sex: Female

DRUGS (13)
  1. CIPROFLOXACIN [Suspect]
     Indication: WOUND INFECTION
     Dosage: 500 MG, BID, ORAL
     Route: 048
  2. LEVOTHYROXINE SODIUM [Suspect]
     Indication: HYPOTHYROIDISM
     Dosage: 150 UG, TOTAL DAILY
  3. ZUCLOPENTHIXOL [Concomitant]
  4. ENALAPRIL MALEATE [Concomitant]
  5. BUMETANIDE [Concomitant]
  6. FOLIC ACID [Concomitant]
  7. LACTULOSE [Concomitant]
  8. ACETYLCYSTEINE [Concomitant]
  9. HYDROXYCHLOROQUINE SULFATE [Concomitant]
  10. PARACETAMOL [Concomitant]
  11. IPRATROPIUM BROMIDE [Concomitant]
  12. SALBUTAMOL [Concomitant]
  13. NYSTATIN [Concomitant]

REACTIONS (5)
  - BLOOD THYROID STIMULATING HORMONE INCREASED [None]
  - DRUG INTERACTION [None]
  - LEG AMPUTATION [None]
  - THYROXINE FREE DECREASED [None]
  - WOUND INFECTION [None]
